FAERS Safety Report 4435415-9 (Version None)
Quarter: 2004Q3

REPORT INFORMATION
  Report Type: 
  Country: None (occurrence: None)
  Receive Date: 20040826
  Receipt Date: 20040813
  Transmission Date: 20050211
  Serious: Yes (Hospitalization, Other)
  Sender: FDA-Public Use
  Company Number: 2004199407AU

PATIENT
  Age: 60 Year
  Sex: Male

DRUGS (7)
  1. CELEBREX [Suspect]
     Indication: OSTEOARTHRITIS
     Dosage: 200 MG, QD, ORAL
     Route: 048
     Dates: start: 20030822, end: 20030822
  2. ODRIK (TRANDOLAPRIL) [Concomitant]
  3. AMIZIDE [Concomitant]
  4. PRESSIN [Concomitant]
  5. DILANTIN [Concomitant]
  6. VENTOLIN [Concomitant]
  7. PULMICORT [Concomitant]

REACTIONS (5)
  - DUODENITIS [None]
  - GASTROINTESTINAL HAEMORRHAGE [None]
  - HAEMATEMESIS [None]
  - MALLORY-WEISS SYNDROME [None]
  - VOMITING [None]
